FAERS Safety Report 7349558-3 (Version None)
Quarter: 2011Q1

REPORT INFORMATION
  Report Type: 
  Country: None (occurrence: None)
  Receive Date: 20110314
  Receipt Date: 20110308
  Transmission Date: 20110831
  Serious: Yes (Hospitalization)
  Sender: FDA-Public Use
  Company Number: NL-US-EMD SERONO, INC.-7046622

PATIENT
  Sex: Female
  Weight: 52 kg

DRUGS (5)
  1. REBIF [Suspect]
     Route: 058
     Dates: start: 20110301
  2. AMOXICILLIN [Concomitant]
     Indication: NASOPHARYNGITIS
  3. FLIXONASE [Concomitant]
     Dates: start: 20110302
  4. REBIF [Suspect]
     Route: 058
     Dates: start: 20110203, end: 20110306
  5. REBIF [Suspect]
     Indication: MULTIPLE SCLEROSIS
     Route: 058
     Dates: start: 20110103, end: 20110106

REACTIONS (1)
  - LOSS OF CONSCIOUSNESS [None]
